FAERS Safety Report 4871086-5 (Version None)
Quarter: 2006Q1

REPORT INFORMATION
  Report Type: 
  Country: None (occurrence: None)
  Receive Date: 20060103
  Receipt Date: 20000911
  Transmission Date: 20060701
  Serious: Yes (Hospitalization)
  Sender: FDA-Public Use
  Company Number: AU-ABBOTT-00P-008-0097551-00

PATIENT
  Sex: Male

DRUGS (6)
  1. FENOFIBRATE [Suspect]
     Indication: DYSLIPIDAEMIA
     Route: 048
     Dates: start: 19990202, end: 20000328
  2. FENOFIBRATE [Suspect]
     Dates: start: 20000610
  3. ASPIRIN [Concomitant]
     Indication: DRUG USE FOR UNKNOWN INDICATION
     Dates: start: 19980601
  4. LISINOPRIL [Concomitant]
     Indication: DRUG USE FOR UNKNOWN INDICATION
     Dates: start: 19990901
  5. METFORMIN HYDROCHLORIDE [Concomitant]
     Indication: DRUG USE FOR UNKNOWN INDICATION
     Dates: start: 19950101, end: 20000701
  6. INSULIN INITARD NORDISK [Concomitant]
     Indication: DRUG USE FOR UNKNOWN INDICATION
     Dates: start: 20000501, end: 20000701

REACTIONS (3)
  - AUTOIMMUNE DISORDER [None]
  - PAIN [None]
  - POLYMYALGIA RHEUMATICA [None]
